FAERS Safety Report 16176831 (Version 2)
Quarter: 2019Q2

REPORT INFORMATION
  Report Type: Spontaneous
  Country: DE (occurrence: DE)
  Receive Date: 20190409
  Receipt Date: 20190610
  Transmission Date: 20190711
  Serious: Yes (Death, Hospitalization, Other)
  Sender: FDA-Public Use
  Company Number: DE-GILEAD-2019-0400748

PATIENT
  Sex: Female

DRUGS (1)
  1. YESCARTA [Suspect]
     Active Substance: AXICABTAGENE CILOLEUCEL
     Indication: DIFFUSE LARGE B-CELL LYMPHOMA
     Dosage: UNK
     Route: 042

REACTIONS (7)
  - Hypercalcaemia [Unknown]
  - Death [Fatal]
  - Lymphocytic infiltration [Unknown]
  - Lymphadenopathy [Unknown]
  - Pyrexia [Unknown]
  - Malaise [Unknown]
  - C-reactive protein abnormal [Unknown]
